FAERS Safety Report 6591031-4 (Version None)
Quarter: 2010Q1

REPORT INFORMATION
  Report Type: 
  Country: None (occurrence: None)
  Receive Date: 20100216
  Receipt Date: 20090831
  Transmission Date: 20100710
  Serious: No
  Sender: FDA-Public Use
  Company Number: 2009-00568

PATIENT
  Age: 80 Year
  Sex: Female
  Weight: 55.7924 kg

DRUGS (9)
  1. ZICAM COLD REMEDY NASAL GEL [Suspect]
     Dosage: 2-3X/DAY; VERY LONG TIME-RECENT
  2. ZICAM COLD REMEDY NASAL GEL [Suspect]
  3. ZICAM COLD REMEDY NASAL GEL [Suspect]
     Dosage: 2-3X/DAY; VERY LONG TIME-RECENT
  4. EXELON [Concomitant]
  5. GABAPENTIN [Concomitant]
  6. CULTURALE [Concomitant]
  7. CALTRATE WITH VITAMIN D [Concomitant]
  8. SLICEOLIFE (MULTIVITAMIN) [Concomitant]
  9. OMEPRAZOLE [Concomitant]

REACTIONS (1)
  - ANOSMIA [None]
